FAERS Safety Report 7141784-1 (Version None)
Quarter: 2010Q4

REPORT INFORMATION
  Report Type: 
  Country: None (occurrence: None)
  Receive Date: 20101207
  Receipt Date: 20101124
  Transmission Date: 20110411
  Serious: Yes (Hospitalization)
  Sender: FDA-Public Use
  Company Number: US-ROCHE-690197

PATIENT
  Sex: Female

DRUGS (3)
  1. MYCOPHENOLATE MOFETIL [Suspect]
     Route: 065
     Dates: start: 20060509
  2. BELATACEPT [Suspect]
     Dosage: MORE INTENSIVE REGIMEN; FORM PER PROTOCOL
     Route: 042
     Dates: start: 20060509
  3. PREDNISONE [Suspect]
     Route: 065
     Dates: start: 20060511

REACTIONS (3)
  - ESCHERICHIA SEPSIS [None]
  - OSTEOARTHRITIS [None]
  - UROSEPSIS [None]
